FAERS Safety Report 21232569 (Version 1)
Quarter: 2022Q3

REPORT INFORMATION
  Report Type: Spontaneous
  Country: US (occurrence: US)
  Receive Date: 20220819
  Receipt Date: 20220819
  Transmission Date: 20221027
  Serious: No
  Sender: FDA-Public Use
  Company Number: US-drreddys-SPO/USA/22/0153299

PATIENT
  Sex: Female

DRUGS (1)
  1. RISPERIDONE [Suspect]
     Active Substance: RISPERIDONE
     Indication: Product used for unknown indication

REACTIONS (1)
  - Extrapyramidal disorder [Recovered/Resolved]
